FAERS Safety Report 7954083 (Version 4)
Quarter: 2017Q1

REPORT INFORMATION
  Report Type: Spontaneous
  Country: US (occurrence: US)
  Receive Date: 20110520
  Receipt Date: 20170111
  Transmission Date: 20170429
  Serious: Yes (Hospitalization, Other)
  Sender: FDA-Public Use
  Company Number: US-ASTRAZENECA-2011SE28597

PATIENT
  Age: 72 Year
  Sex: Female
  Weight: 94.8 kg

DRUGS (6)
  1. CRESTOR [Suspect]
     Active Substance: ROSUVASTATIN CALCIUM
     Route: 048
  2. NEXIUM [Suspect]
     Active Substance: ESOMEPRAZOLE MAGNESIUM
     Route: 048
  3. CRESTOR [Suspect]
     Active Substance: ROSUVASTATIN CALCIUM
     Dosage: 40 MG
     Route: 048
  4. SEROQUEL [Suspect]
     Active Substance: QUETIAPINE FUMARATE
     Indication: DEPRESSION
     Route: 048
  5. SEROQUEL [Suspect]
     Active Substance: QUETIAPINE FUMARATE
     Indication: DEPRESSION
     Route: 048
  6. SEROQUEL [Suspect]
     Active Substance: QUETIAPINE FUMARATE
     Indication: DEPRESSION
     Route: 048

REACTIONS (12)
  - Dementia [Unknown]
  - Stress cardiomyopathy [Unknown]
  - Lethargy [Unknown]
  - Thrombosis [Unknown]
  - Memory impairment [Unknown]
  - Emotional distress [Unknown]
  - Weight increased [Unknown]
  - Myocardial infarction [Unknown]
  - Extra dose administered [Unknown]
  - Cardiomyopathy [Unknown]
  - Cerebrovascular accident [Unknown]
  - Somnolence [Unknown]

NARRATIVE: CASE EVENT DATE: 2010
